FAERS Safety Report 5882894-6 (Version None)
Quarter: 2008Q3

REPORT INFORMATION
  Report Type: 
  Country: None (occurrence: None)
  Receive Date: 20080913
  Receipt Date: 20080820
  Transmission Date: 20090109
  Serious: No
  Sender: FDA-Public Use
  Company Number: US-ABBOTT-08P-163-0471805-00

PATIENT
  Sex: Female
  Weight: 56.75 kg

DRUGS (3)
  1. HUMIRA [Suspect]
     Indication: RHEUMATOID ARTHRITIS
     Route: 058
     Dates: start: 20080409
  2. LEFLUNOMIDE [Concomitant]
     Indication: RHEUMATOID ARTHRITIS
     Route: 048
     Dates: start: 20080101
  3. PREDNISONE TAB [Concomitant]
     Indication: INFLAMMATION
     Route: 048
     Dates: start: 20071001

REACTIONS (3)
  - DYSFUNCTIONAL UTERINE BLEEDING [None]
  - OVARIAN CYST [None]
  - UTERINE POLYP [None]
